FAERS Safety Report 6821801-6 (Version None)
Quarter: 2010Q3

REPORT INFORMATION
  Report Type: 
  Country: None (occurrence: None)
  Receive Date: 20100707
  Receipt Date: 20100707
  Transmission Date: 20110219
  Serious: No
  Sender: FDA-Public Use
  Company Number: None

PATIENT
  Sex: Female
  Weight: 105.2345 kg

DRUGS (1)
  1. KAPIDEX 60MG TAKEDA PHA [Suspect]
     Indication: BARRETT'S OESOPHAGUS
     Dosage: 60 MG 1 BEFORE BREAKFAST
     Dates: start: 20100529

REACTIONS (5)
  - CHILLS [None]
  - INFLUENZA [None]
  - LIP SWELLING [None]
  - THROAT TIGHTNESS [None]
  - VOMITING [None]
